FAERS Safety Report 23744521 (Version 1)
Quarter: 2024Q2

REPORT INFORMATION
  Report Type: Spontaneous
  Country: CN (occurrence: CN)
  Receive Date: 20240415
  Receipt Date: 20240415
  Transmission Date: 20240716
  Serious: No
  Sender: FDA-Public Use
  Company Number: CN-La Jolla Pharmaceutical Company-2024TP000001

PATIENT
  Age: 60 Year
  Sex: Male
  Weight: 72.8 kg

DRUGS (1)
  1. XERAVA [Suspect]
     Active Substance: ERAVACYCLINE DIHYDROCHLORIDE
     Indication: Anti-infective therapy
     Route: 042
     Dates: start: 20231117, end: 20231207

REACTIONS (1)
  - Amylase increased [Recovering/Resolving]

NARRATIVE: CASE EVENT DATE: 20231207
